FAERS Safety Report 5024215-7 (Version None)
Quarter: 2006Q2

REPORT INFORMATION
  Report Type: 
  Country: None (occurrence: None)
  Receive Date: 20060607
  Receipt Date: 20060603
  Transmission Date: 20061013
  Serious: Yes (Death)
  Sender: FDA-Public Use
  Company Number: 219225

PATIENT
  Age: 41 Year
  Sex: Male

DRUGS (1)
  1. AVASTIN [Suspect]
     Indication: COLORECTAL CANCER METASTATIC
     Dosage: 295 MG, Q2W, INTRAVENOUS
     Route: 042
     Dates: start: 20050428, end: 20051010

REACTIONS (5)
  - COLORECTAL CANCER METASTATIC [None]
  - HAEMOGLOBIN DECREASED [None]
  - MALIGNANT NEOPLASM PROGRESSION [None]
  - PLATELET COUNT INCREASED [None]
  - RESPIRATORY DISORDER [None]
